FAERS Safety Report 5008016-1 (Version None)
Quarter: 2006Q2

REPORT INFORMATION
  Report Type: 
  Country: None (occurrence: None)
  Receive Date: 20060518
  Receipt Date: 20060508
  Transmission Date: 20061013
  Serious: Yes (Hospitalization)
  Sender: FDA-Public Use
  Company Number: 2006060402

PATIENT
  Age: 96 Year
  Sex: Female

DRUGS (8)
  1. LINEZOLID [Suspect]
     Indication: PNEUMONIA BACTERIAL
     Dosage: 1200 MG  (600 MG, 2 IN 1 D), ORAL
     Route: 048
     Dates: start: 20050112, end: 20050122
  2. MAXIPIME [Suspect]
     Indication: PNEUMONIA BACTERIAL
     Dosage: 1 GRAM (1 GRAM DAILY), INTRAVENOUS
     Route: 042
     Dates: start: 20050113, end: 20050118
  3. CITALOPRAM HYDROBROMIDE [Suspect]
     Indication: AFFECTIVE DISORDER
     Dosage: 10 MG (10 MG, EVERY DAY),ORAL
     Route: 048
     Dates: start: 20040110, end: 20050118
  4. SPIRONOLACTONE [Concomitant]
  5. NADROPARIN (NADROPARIN) [Concomitant]
  6. ACETAMINOPHEN [Concomitant]
  7. GABAPENTIN [Concomitant]
  8. TORSEMIDE [Concomitant]

REACTIONS (10)
  - AGITATION [None]
  - BRONCHOPNEUMONIA [None]
  - COGNITIVE DETERIORATION [None]
  - DRUG INTERACTION [None]
  - ENCEPHALOPATHY [None]
  - ENTEROBACTER INFECTION [None]
  - GENERAL PHYSICAL HEALTH DETERIORATION [None]
  - PNEUMONIA BACTERIAL [None]
  - PYREXIA [None]
  - STAPHYLOCOCCAL INFECTION [None]
